FAERS Safety Report 9028982 (Version 2)
Quarter: 2013Q1

REPORT INFORMATION
  Report Type: Spontaneous
  Country: AR (occurrence: AR)
  Receive Date: 20130123
  Receipt Date: 20130215
  Transmission Date: 20140127
  Serious: Yes (Other)
  Sender: FDA-Public Use
  Company Number: AR-BRISTOL-MYERS SQUIBB COMPANY-17289109

PATIENT
  Age: 71 Year
  Sex: Male

DRUGS (1)
  1. ORENCIA [Suspect]
     Indication: RHEUMATOID ARTHRITIS
     Dosage: DOSE: 3 VIALS (250MG) ON INF
     Route: 042

REACTIONS (3)
  - Cataract [Unknown]
  - Local swelling [Unknown]
  - Malaise [Unknown]
